FAERS Safety Report 8328706-2 (Version None)
Quarter: 2012Q2

REPORT INFORMATION
  Report Type: 
  Country: None (occurrence: None)
  Receive Date: 20120502
  Receipt Date: 20120423
  Transmission Date: 20120825
  Serious: No
  Sender: FDA-Public Use
  Company Number: US-ENDO PHARMACEUTICALS INC.-PERC20120081

PATIENT
  Sex: Male

DRUGS (2)
  1. PERCOCET [Suspect]
     Indication: BREAKTHROUGH PAIN
     Dosage: UNK
     Route: 048
     Dates: start: 20120201
  2. OPANA [Concomitant]
     Indication: BREAKTHROUGH PAIN
     Dosage: 10 MG
     Route: 048
     Dates: end: 20120101

REACTIONS (3)
  - VOMITING [None]
  - NAUSEA [None]
  - DRUG INEFFECTIVE [None]
